FAERS Safety Report 12904800 (Version 1)
Quarter: 2016Q4

REPORT INFORMATION
  Report Type: Spontaneous
  Country: US (occurrence: US)
  Receive Date: 20161102
  Receipt Date: 20161102
  Transmission Date: 20170207
  Serious: No
  Sender: FDA-Public Use
  Company Number: US-APOTEX-2016AP009419

PATIENT
  Age: 46 Year
  Sex: Female

DRUGS (1)
  1. TAMOXIFEN CITRATE TABLETS USP [Suspect]
     Active Substance: TAMOXIFEN CITRATE
     Indication: BREAST CANCER
     Dosage: UNK, UNKNOWN
     Route: 065

REACTIONS (5)
  - Atrophic vulvovaginitis [Recovering/Resolving]
  - Loss of libido [Recovering/Resolving]
  - Dyspareunia [Recovering/Resolving]
  - Depression [Recovered/Resolved]
  - Hot flush [Recovering/Resolving]
